FAERS Safety Report 26063235 (Version 1)
Quarter: 2025Q4

REPORT INFORMATION
  Report Type: Spontaneous
  Country: US (occurrence: US)
  Receive Date: 20251119
  Receipt Date: 20251119
  Transmission Date: 20260117
  Serious: Yes (Other)
  Sender: AMGEN
  Company Number: US-AMGEN-USASP2025223493

PATIENT
  Sex: Female

DRUGS (2)
  1. AMJEVITA [Suspect]
     Active Substance: ADALIMUMAB-ATTO
     Indication: Product used for unknown indication
     Dosage: UNK
     Route: 058
  2. PREDNISONE [Suspect]
     Active Substance: PREDNISONE
     Indication: Product used for unknown indication
     Dosage: UNK, TAPER FOR 7 DAYS
     Route: 065

REACTIONS (6)
  - Mental impairment [Unknown]
  - Paranoia [Unknown]
  - Therapeutic response decreased [Unknown]
  - Emotional distress [Unknown]
  - Thinking abnormal [Unknown]
  - Disturbance in attention [Unknown]
